FAERS Safety Report 6985134-X (Version None)
Quarter: 2010Q3

REPORT INFORMATION
  Report Type: 
  Country: None (occurrence: None)
  Receive Date: 20100915
  Receipt Date: 20100901
  Transmission Date: 20110219
  Serious: Yes (Hospitalization)
  Sender: FDA-Public Use
  Company Number: DE-ROCHE-719801

PATIENT
  Sex: Male
  Weight: 80 kg

DRUGS (9)
  1. TOCILIZUMAB [Suspect]
     Indication: RHEUMATOID ARTHRITIS
     Route: 042
     Dates: start: 20100326, end: 20100526
  2. METHOTREXATE SODIUM [Concomitant]
     Indication: RHEUMATOID ARTHRITIS
     Route: 058
  3. PREDNISONE [Concomitant]
     Indication: RHEUMATOID ARTHRITIS
  4. FOLIC ACID [Concomitant]
     Indication: RHEUMATOID ARTHRITIS
  5. CALCIUM NOS [Concomitant]
  6. VITAMIN D [Concomitant]
  7. ALENDRONATE SODIUM [Concomitant]
  8. ETORICOXIB [Concomitant]
     Dates: end: 20100629
  9. BISOPROLOL [Concomitant]

REACTIONS (1)
  - MYOCARDIAL INFARCTION [None]
